FAERS Safety Report 8042122-2 (Version None)
Quarter: 2012Q1

REPORT INFORMATION
  Report Type: 
  Country: None (occurrence: None)
  Receive Date: 20120112
  Receipt Date: 20120104
  Transmission Date: 20120608
  Serious: No
  Sender: FDA-Public Use
  Company Number: CA-JNJFOC-20120102613

PATIENT
  Sex: Female
  Weight: 98.88 kg

DRUGS (2)
  1. REMICADE [Suspect]
     Indication: RHEUMATOID ARTHRITIS
     Route: 042
     Dates: start: 20110901
  2. REMICADE [Suspect]
     Route: 042

REACTIONS (1)
  - HERPES ZOSTER [None]
